FAERS Safety Report 13935836 (Version 2)
Quarter: 2017Q4

REPORT INFORMATION
  Report Type: Report from Study
  Country: IN (occurrence: IN)
  Receive Date: 20170905
  Receipt Date: 20171009
  Transmission Date: 20180320
  Serious: Yes (Other)
  Sender: FDA-Public Use
  Company Number: IN-MYLANLABS-2017M1055284

PATIENT
  Age: 67 Year
  Sex: Female

DRUGS (3)
  1. CLOZAPINE. [Suspect]
     Active Substance: CLOZAPINE
     Indication: SCHIZOPHRENIA
     Dosage: 50 MG, UNK
     Dates: start: 201312
  2. RISPERIDONE. [Suspect]
     Active Substance: RISPERIDONE
     Indication: SCHIZOPHRENIA
     Dosage: 4 MG, UNK
     Dates: start: 201312
  3. RISPERIDONE. [Suspect]
     Active Substance: RISPERIDONE
     Dosage: 6 MG, UNK

REACTIONS (3)
  - Sleep disorder [Recovered/Resolved]
  - Extrapyramidal disorder [Recovered/Resolved]
  - Parkinsonism [Recovered/Resolved]

NARRATIVE: CASE EVENT DATE: 2014
